FAERS Safety Report 9857337 (Version 2)
Quarter: 2014Q1

REPORT INFORMATION
  Report Type: Spontaneous
  Country: US (occurrence: US)
  Receive Date: 20140130
  Receipt Date: 20140130
  Transmission Date: 20141002
  Serious: Yes (Other)
  Sender: FDA-Public Use
  Company Number: PHEH2013US022550

PATIENT
  Sex: Female
  Weight: 116 kg

DRUGS (7)
  1. FANAPT [Suspect]
     Indication: SCHIZOPHRENIA
     Dosage: UNK UKN, UNK
     Route: 048
     Dates: start: 20131003
  2. FANAPT [Suspect]
     Dosage: 6 MG, BID
     Route: 048
  3. FANAPT [Suspect]
     Dosage: TAPERED OFF
     Route: 048
     Dates: start: 20131028, end: 20131101
  4. METFORMIN [Concomitant]
     Indication: WEIGHT INCREASED
     Dosage: 500MG AM AND 1000MG PM
     Route: 048
     Dates: start: 20131015
  5. LORAZEPAM [Concomitant]
     Route: 048
  6. ATORVASTATIN [Concomitant]
     Dosage: 40 G, UNK
     Route: 048
     Dates: start: 201209
  7. DIFENHYDRAMIN [Concomitant]
     Dosage: UNK UKN, UNK

REACTIONS (2)
  - Weight decreased [Unknown]
  - Weight increased [Unknown]
